FAERS Safety Report 14497777 (Version 1)
Quarter: 2018Q1

REPORT INFORMATION
  Report Type: Spontaneous
  Country: CA (occurrence: CA)
  Receive Date: 20180207
  Receipt Date: 20180207
  Transmission Date: 20180509
  Serious: Yes (Other)
  Sender: FDA-Public Use
  Company Number: CA-BAYER-2018-022645

PATIENT
  Age: 80 Year
  Sex: Female

DRUGS (1)
  1. RESTORALAX [Suspect]
     Active Substance: POLYETHYLENE GLYCOL 3350
     Dosage: DAILY FOR THREE DAYS
     Dates: start: 201801, end: 201801

REACTIONS (5)
  - Fungal skin infection [Recovering/Resolving]
  - Erythema [Recovering/Resolving]
  - Tongue discolouration [Recovering/Resolving]
  - Pruritus [Recovering/Resolving]
  - Pulmonary congestion [Not Recovered/Not Resolved]

NARRATIVE: CASE EVENT DATE: 201801
